FAERS Safety Report 5802522-5 (Version None)
Quarter: 2008Q2

REPORT INFORMATION
  Report Type: 
  Country: None (occurrence: None)
  Receive Date: 20080627
  Receipt Date: 20080417
  Transmission Date: 20081010
  Serious: Yes (Other)
  Sender: FDA-Public Use
  Company Number: TPA2008A00534

PATIENT
  Age: 10 Decade
  Sex: Male

DRUGS (2)
  1. ACTOPLUS MET [Suspect]
     Indication: DRUG USE FOR UNKNOWN INDICATION
     Dosage: PER ORAL
     Route: 048
  2. UNKNOWN BETA BLOCKER(BETA BLOCKING AGENTS) [Concomitant]

REACTIONS (1)
  - CARDIAC FAILURE CONGESTIVE [None]
